FAERS Safety Report 7685787-7 (Version None)
Quarter: 2011Q3

REPORT INFORMATION
  Report Type: 
  Country: None (occurrence: None)
  Receive Date: 20110815
  Receipt Date: 20110815
  Transmission Date: 20111222
  Serious: Yes (Other)
  Sender: FDA-Public Use
  Company Number: None

PATIENT
  Age: 53 Year
  Sex: Female
  Weight: 72.574 kg

DRUGS (2)
  1. CYMBALTA [Suspect]
     Indication: NEUROPATHY PERIPHERAL
     Dosage: 1 CAPSULE
     Route: 048
     Dates: start: 20110731, end: 20110731
  2. CYMBALTA [Suspect]
     Indication: FIBROMYALGIA
     Dosage: 1 CAPSULE
     Route: 048
     Dates: start: 20110731, end: 20110731

REACTIONS (4)
  - AMNESIA [None]
  - MALAISE [None]
  - DIZZINESS [None]
  - LETHARGY [None]
